FAERS Safety Report 9946924 (Version 1)
Quarter: 2014Q1

REPORT INFORMATION
  Report Type: Report from Study
  Country: US (occurrence: US)
  Receive Date: 20140303
  Receipt Date: 20140303
  Transmission Date: 20141002
  Serious: No
  Sender: FDA-Public Use
  Company Number: US-ABBVIE-13P-163-1063712-00

PATIENT
  Age: 59 Year
  Sex: Female

DRUGS (8)
  1. HUMIRA [Suspect]
     Indication: COLITIS ULCERATIVE
     Dosage: LOADING DOSE
     Dates: start: 20130301, end: 20130301
  2. HUMIRA [Suspect]
     Dates: start: 20130301
  3. PHENERGAN [Concomitant]
     Indication: NAUSEA
  4. UNKNOWN MEDICATION [Concomitant]
     Indication: ARTHRALGIA
     Dosage: 2.5MG AND 5MG TABS AS WELL AS SUPPOSITORY AND GEL
  5. ZOFRAN [Concomitant]
     Indication: NAUSEA
  6. ZOFRAN [Concomitant]
     Indication: COLITIS ULCERATIVE
  7. D3 [Concomitant]
     Indication: PRODUCT USED FOR UNKNOWN INDICATION
     Dosage: 1000-2000MG DAILY
  8. B-12, B6, AND FOLIC ACID COMBINATION [Concomitant]
     Indication: PRODUCT USED FOR UNKNOWN INDICATION
     Dosage: PILL, 2-3 TIMES A WEEK
     Route: 060

REACTIONS (3)
  - Oropharyngeal pain [Recovered/Resolved]
  - Sinus operation [Recovered/Resolved]
  - Injection site pain [Unknown]
